FAERS Safety Report 19280728 (Version 1)
Quarter: 2021Q2

REPORT INFORMATION
  Report Type: Spontaneous
  Country: BR (occurrence: BR)
  Receive Date: 20210520
  Receipt Date: 20210520
  Transmission Date: 20210717
  Serious: Yes (Death)
  Sender: FDA-Public Use
  Company Number: NVSC2021BR113245

PATIENT
  Age: 76 Year
  Sex: Male

DRUGS (2)
  1. ENTRESTO [Suspect]
     Active Substance: SACUBITRIL\VALSARTAN
     Indication: ARTERIAL DISORDER
     Dosage: UNK
     Route: 065
     Dates: start: 202007
  2. ENTRESTO [Suspect]
     Active Substance: SACUBITRIL\VALSARTAN
     Indication: CARDIAC DISORDER

REACTIONS (7)
  - Death [Fatal]
  - Pneumonia aspiration [Fatal]
  - Cerebrovascular accident [Fatal]
  - Lung disorder [Fatal]
  - Cardiac failure [Fatal]
  - Product use in unapproved indication [Unknown]
  - Dysphagia [Unknown]

NARRATIVE: CASE EVENT DATE: 20210501
